FAERS Safety Report 23641593 (Version 2)
Quarter: 2024Q2

REPORT INFORMATION
  Report Type: Spontaneous
  Country: US (occurrence: US)
  Receive Date: 20240318
  Receipt Date: 20240418
  Transmission Date: 20240716
  Serious: No
  Sender: FDA-Public Use
  Company Number: US-862174955-ML2024-01391

PATIENT
  Age: 84 Year
  Sex: Female

DRUGS (5)
  1. DORZOLAMIDE\TIMOLOL [Suspect]
     Active Substance: DORZOLAMIDE\TIMOLOL
     Indication: Open angle glaucoma
     Dosage: BEFORE KEEPING IN REFRIGERATOR
     Route: 047
     Dates: start: 2023
  2. DORZOLAMIDE\TIMOLOL [Suspect]
     Active Substance: DORZOLAMIDE\TIMOLOL
     Dosage: AFTER REMOVING IT FROM REFRIGERATOR
     Route: 047
     Dates: start: 20240207
  3. Alphagan P Eye drops 1% [Concomitant]
     Indication: Open angle glaucoma
  4. ASPIRIN [Concomitant]
     Active Substance: ASPIRIN
     Indication: Cardiac disorder
  5. ATORVASTATIN [Concomitant]
     Active Substance: ATORVASTATIN
     Indication: Blood cholesterol

REACTIONS (7)
  - Halo vision [Not Recovered/Not Resolved]
  - Headache [Not Recovered/Not Resolved]
  - Eye pain [Unknown]
  - Vision blurred [Not Recovered/Not Resolved]
  - Diplopia [Unknown]
  - Dry eye [Not Recovered/Not Resolved]
  - Product storage error [Unknown]
